FAERS Safety Report 20090286 (Version 1)
Quarter: 2021Q4

REPORT INFORMATION
  Report Type: Spontaneous
  Country: US (occurrence: US)
  Receive Date: 20211119
  Receipt Date: 20211119
  Transmission Date: 20220303
  Serious: Yes (Hospitalization, Other)
  Sender: FDA-Public Use
  Company Number: US-009507513-2111USA005490

PATIENT
  Sex: Female

DRUGS (7)
  1. KEYTRUDA [Suspect]
     Active Substance: PEMBROLIZUMAB
     Dosage: UNK
     Route: 042
  2. LENVATINIB MESYLATE [Suspect]
     Active Substance: LENVATINIB MESYLATE
     Indication: Endometrial cancer
     Dosage: 20 MILLIGRAM, DAILY
     Route: 048
     Dates: start: 20200611, end: 202007
  3. LENVATINIB MESYLATE [Suspect]
     Active Substance: LENVATINIB MESYLATE
     Dosage: 10 MILLIGRAM, DAILY
     Route: 048
     Dates: start: 20200718, end: 20210907
  4. LENVATINIB MESYLATE [Suspect]
     Active Substance: LENVATINIB MESYLATE
     Dosage: 20 MILLIGRAM, DAILY
     Route: 048
     Dates: start: 20210908
  5. AMLODIPINE [Concomitant]
     Active Substance: AMLODIPINE BESYLATE
     Indication: Hypertension
     Dosage: 10 MILLIGRAM, DAILY
     Route: 048
  6. ENALAPRIL [Concomitant]
     Active Substance: ENALAPRIL
     Dosage: 10 MILLIGRAM, DAILY
     Route: 048
  7. VALACYCLOVIR HYDROCHLORIDE [Concomitant]
     Active Substance: VALACYCLOVIR HYDROCHLORIDE
     Indication: Herpes zoster
     Dosage: 500 MILLIGRAM, Q12H
     Route: 048
     Dates: start: 202007

REACTIONS (32)
  - Gastritis [Unknown]
  - Constipation [Unknown]
  - Urinary tract infection [Unknown]
  - Large intestine infection [Unknown]
  - Pain [Unknown]
  - Dysphonia [Unknown]
  - Glossodynia [Unknown]
  - Lacrimation increased [Unknown]
  - Eye irritation [Unknown]
  - Erythema of eyelid [Unknown]
  - Eyelids pruritus [Unknown]
  - Eyelid pain [Unknown]
  - Hot flush [Unknown]
  - Erythema [Unknown]
  - Oropharyngeal pain [Unknown]
  - Herpes zoster [Unknown]
  - Blood pressure diastolic increased [Unknown]
  - Blood pressure abnormal [Unknown]
  - Cholecystitis [Unknown]
  - Hypoaesthesia [Unknown]
  - Pain in extremity [Unknown]
  - Musculoskeletal stiffness [Unknown]
  - Fungal infection [Unknown]
  - Groin pain [Unknown]
  - Back pain [Unknown]
  - Joint swelling [Unknown]
  - Stomatitis [Unknown]
  - Skin lesion [Unknown]
  - Dysuria [Unknown]
  - Arthritis infective [Unknown]
  - Thyroid hormones decreased [Unknown]
  - Incorrect dose administered [Unknown]

NARRATIVE: CASE EVENT DATE: 20200101
